FAERS Safety Report 6465022-8 (Version None)
Quarter: 2009Q4

REPORT INFORMATION
  Report Type: 
  Country: None (occurrence: None)
  Receive Date: 20091201
  Receipt Date: 20091120
  Transmission Date: 20100525
  Serious: Yes (Hospitalization)
  Sender: FDA-Public Use
  Company Number: US-BAXTER-2009BH017022

PATIENT
  Age: 55 Year
  Sex: Female

DRUGS (3)
  1. DIANEAL [Suspect]
     Indication: PERITONEAL DIALYSIS
     Route: 033
     Dates: start: 20090101
  2. DIANEAL [Suspect]
     Indication: PERITONEAL DIALYSIS
     Route: 033
     Dates: start: 20080101
  3. SEPTRA [Suspect]
     Indication: RESPIRATORY TRACT INFECTION
     Route: 065

REACTIONS (6)
  - ABDOMINAL PAIN [None]
  - DYSPNOEA [None]
  - NAUSEA [None]
  - PROCEDURAL COMPLICATION [None]
  - RESPIRATORY TRACT INFECTION [None]
  - VOMITING [None]
